FAERS Safety Report 5099344-2 (Version None)
Quarter: 2006Q3

REPORT INFORMATION
  Report Type: 
  Country: None (occurrence: None)
  Receive Date: 20060727
  Receipt Date: 20060522
  Transmission Date: 20061208
  Serious: No
  Sender: FDA-Public Use
  Company Number: FACT0600259

PATIENT
  Age: 82 Year
  Sex: Female
  Weight: 50.8 kg

DRUGS (2)
  1. FACTIVE [Suspect]
     Indication: RESPIRATORY TRACT INFECTION BACTERIAL
     Dosage: 320 MG, QD, ORAL
     Route: 048
  2. CALCIUM CITRATE W/VITAMIN D NOS (CALCIUM CITRATE, VITAMIN D NOS) TABLE [Concomitant]

REACTIONS (2)
  - NAUSEA [None]
  - VOMITING [None]
